FAERS Safety Report 7539074 (Version 3)
Quarter: 2014Q1

REPORT INFORMATION
  Report Type: Spontaneous
  Country: US (occurrence: US)
  Receive Date: 20100812
  Receipt Date: 20140107
  Transmission Date: 20141002
  Serious: Yes (Other)
  Sender: FDA-Public Use
  Company Number: US-BAYER-201030313NA

PATIENT
  Age: 20 Year
  Sex: Female
  Weight: 66 kg

DRUGS (3)
  1. YASMIN [Suspect]
     Indication: ORAL CONTRACEPTION
     Dosage: UNK UNK, UNK
     Route: 048
     Dates: start: 200403, end: 200901
  2. OCELLA [Suspect]
     Indication: ORAL CONTRACEPTION
     Dosage: UNK
     Dates: start: 200901
  3. ASPIRIN [Concomitant]
     Indication: HEADACHE
     Dosage: UNK

REACTIONS (5)
  - Gallbladder injury [Unknown]
  - Abdominal pain [None]
  - Nausea [None]
  - Diarrhoea [None]
  - Cholecystitis chronic [None]
